FAERS Safety Report 8438965-3 (Version None)
Quarter: 2012Q2

REPORT INFORMATION
  Report Type: 
  Country: None (occurrence: None)
  Receive Date: 20120608
  Receipt Date: 20120604
  Transmission Date: 20120825
  Serious: Yes (Other)
  Sender: FDA-Public Use
  Company Number: A0980018A

PATIENT
  Age: 65 Year
  Sex: Male

DRUGS (1)
  1. UREA PEROXIDE [Suspect]

REACTIONS (6)
  - WRONG TECHNIQUE IN DRUG USAGE PROCESS [None]
  - DEAFNESS [None]
  - TINNITUS [None]
  - DRUG ADMINISTRATION ERROR [None]
  - CONDITION AGGRAVATED [None]
  - EXPIRED DRUG ADMINISTERED [None]
